FAERS Safety Report 6315893-0 (Version None)
Quarter: 2009Q3

REPORT INFORMATION
  Report Type: 
  Country: None (occurrence: None)
  Receive Date: 20090820
  Receipt Date: 20090812
  Transmission Date: 20100115
  Serious: Yes (Life-Threatening, Other)
  Sender: FDA-Public Use
  Company Number: GB-ELI_LILLY_AND_COMPANY-GB200908002518

PATIENT
  Age: 57 Year
  Sex: Male

DRUGS (9)
  1. HUMALOG MIX 75/25 [Suspect]
  2. AMLODIPINE [Concomitant]
     Dosage: UNK, UNK
     Dates: start: 20090118
  3. ASPIRIN [Concomitant]
     Dates: start: 20040625
  4. METFORMIN [Concomitant]
     Dates: start: 20050905
  5. RAMIPRIL [Concomitant]
     Dates: start: 20070711
  6. SILDENAFIL CITRATE [Concomitant]
     Dates: start: 20030101
  7. SIMVASTATIN [Concomitant]
     Dates: start: 20061124
  8. CROMOLYN SODIUM [Concomitant]
     Route: 047
     Dates: start: 20081103
  9. NOVOMIX30 [Concomitant]
     Dosage: 14 IU, 2/D
     Route: 058
     Dates: start: 20090520, end: 20090615

REACTIONS (5)
  - DRUG HYPERSENSITIVITY [None]
  - INJECTION SITE ERYTHEMA [None]
  - INJECTION SITE RASH [None]
  - INJECTION SITE URTICARIA [None]
  - URTICARIA [None]
